FAERS Safety Report 5779653-1 (Version None)
Quarter: 2008Q2

REPORT INFORMATION
  Report Type: 
  Country: None (occurrence: None)
  Receive Date: 20080617
  Receipt Date: 20080602
  Transmission Date: 20081010
  Serious: Yes (Other)
  Sender: FDA-Public Use
  Company Number: MK-6030542

PATIENT
  Age: 38 Year
  Sex: Male

DRUGS (11)
  1. DOXAZOSIN (DOXAZOSIN) [Suspect]
     Indication: DRUG USE FOR UNKNOWN INDICATION
  2. PERINDOPRIL ERBUMINE [Suspect]
     Indication: HYPERTENSION
  3. ATENOLOL [Suspect]
     Indication: HYPERTENSION
  4. PYRIDOXINE (PYRIDOXINE) [Suspect]
     Indication: DRUG USE FOR UNKNOWN INDICATION
  5. ATORVASTATIN CALCIUM [Suspect]
     Indication: HYPERLIPIDAEMIA
  6. CYCLOSPORINE [Suspect]
     Indication: DRUG USE FOR UNKNOWN INDICATION
  7. ASPIRIN [Suspect]
     Indication: DRUG USE FOR UNKNOWN INDICATION
  8. CELLCEPT [Suspect]
     Indication: RENAL TRANSPLANT
     Dosage: ORAL
     Route: 048
     Dates: start: 20020615, end: 20060315
  9. ISONIAZID [Suspect]
     Indication: DRUG USE FOR UNKNOWN INDICATION
  10. LAMIVUDINE [Suspect]
     Indication: HEPATITIS B
  11. NEORAL [Suspect]
     Indication: RENAL TRANSPLANT
     Dates: start: 20000101

REACTIONS (1)
  - SPERMATOZOA PROGRESSIVE MOTILITY DECREASED [None]
